FAERS Safety Report 8534950-1 (Version None)
Quarter: 2012Q3

REPORT INFORMATION
  Report Type: 
  Country: None (occurrence: None)
  Receive Date: 20120724
  Receipt Date: 20120717
  Transmission Date: 20120928
  Serious: No
  Sender: FDA-Public Use
  Company Number: US-PFIZER INC-2012141121

PATIENT
  Sex: Female
  Weight: 63 kg

DRUGS (2)
  1. CELEXA [Concomitant]
     Dosage: 40 MG, DAILY
  2. LYRICA [Suspect]
     Indication: FIBROMYALGIA
     Dosage: 150 MG, DAILY

REACTIONS (1)
  - THERAPEUTIC RESPONSE UNEXPECTED [None]
